FAERS Safety Report 15786354 (Version 10)
Quarter: 2019Q3

REPORT INFORMATION
  Report Type: Report from Study
  Country: SG (occurrence: SG)
  Receive Date: 20190103
  Receipt Date: 20190918
  Transmission Date: 20191004
  Serious: Yes (Death, Hospitalization)
  Sender: FDA-Public Use
  Company Number: SG-BAYER-2018-242479

PATIENT
  Sex: Male
  Weight: 54.5 kg

DRUGS (21)
  1. ROGARATINIB [Suspect]
     Active Substance: ROGARATINIB
     Indication: LUNG NEOPLASM MALIGNANT
     Dosage: 800 MG
     Route: 048
     Dates: start: 20190306, end: 20190314
  2. COPANLISIB. [Suspect]
     Active Substance: COPANLISIB
     Indication: LUNG NEOPLASM MALIGNANT
     Dosage: 30 MG
     Route: 042
     Dates: start: 20190116, end: 20190116
  3. COPANLISIB. [Suspect]
     Active Substance: COPANLISIB
     Indication: LUNG NEOPLASM MALIGNANT
     Dosage: 30 MG
     Route: 042
     Dates: start: 20190207, end: 20190207
  4. COPANLISIB. [Suspect]
     Active Substance: COPANLISIB
     Indication: LUNG NEOPLASM MALIGNANT
     Dosage: 30 MG
     Route: 042
     Dates: start: 20190222, end: 20190222
  5. AUGMENTIN BD [Concomitant]
     Active Substance: AMOXICILLIN\CLAVULANIC ACID
     Indication: PROPHYLAXIS
     Dosage: 625 MG
     Route: 048
     Dates: start: 20190106, end: 20190107
  6. ROGARATINIB [Suspect]
     Active Substance: ROGARATINIB
     Indication: LUNG NEOPLASM MALIGNANT
     Dosage: 800 MG
     Route: 048
     Dates: start: 20181231, end: 20181231
  7. COPANLISIB. [Suspect]
     Active Substance: COPANLISIB
     Indication: LUNG NEOPLASM MALIGNANT
     Dosage: 45 MG
     Route: 042
     Dates: start: 20181219, end: 20181219
  8. ROGARATINIB [Suspect]
     Active Substance: ROGARATINIB
     Indication: LUNG NEOPLASM MALIGNANT
     Dosage: 800 MG
     Route: 048
     Dates: start: 20190207, end: 20190212
  9. ELOMET [Concomitant]
     Active Substance: MOMETASONE FUROATE
     Indication: RASH MACULO-PAPULAR
     Dosage: UNK
     Route: 061
     Dates: start: 20181224, end: 20190111
  10. POTASSIUM CHLORIDE. [Concomitant]
     Active Substance: POTASSIUM CHLORIDE
     Indication: VOMITING
     Dosage: DAILY DOSE 20 MMOL
     Route: 042
     Dates: start: 20181231, end: 20190101
  11. PIPERACILLIN AND TAZOBACTAM [Concomitant]
     Active Substance: PIPERACILLIN SODIUM\TAZOBACTAM SODIUM
     Indication: PYREXIA
     Dosage: 4.5 G, TID
     Route: 041
     Dates: start: 20190306, end: 20190306
  12. ROGARATINIB [Suspect]
     Active Substance: ROGARATINIB
     Indication: LUNG NEOPLASM MALIGNANT
     Dosage: 800 MG
     Route: 048
     Dates: start: 20190222, end: 20190305
  13. PIPERACILLIN AND TAZOBACTAM [Concomitant]
     Active Substance: PIPERACILLIN SODIUM\TAZOBACTAM SODIUM
     Indication: PYREXIA
     Dosage: 4.5 G, QID
     Dates: start: 20181231, end: 20190101
  14. PIPERACILLIN AND TAZOBACTAM [Concomitant]
     Active Substance: PIPERACILLIN SODIUM\TAZOBACTAM SODIUM
     Indication: PYREXIA
     Dosage: 4.5 G, TID
     Route: 042
     Dates: start: 20190103, end: 20190106
  15. COPANLISIB. [Suspect]
     Active Substance: COPANLISIB
     Indication: LUNG NEOPLASM MALIGNANT
     Dosage: 30 MG
     Route: 042
     Dates: start: 20190109, end: 20190109
  16. COPANLISIB. [Suspect]
     Active Substance: COPANLISIB
     Indication: LUNG NEOPLASM MALIGNANT
     Dosage: 30 MG
     Route: 042
     Dates: start: 20190123, end: 20190123
  17. ROGARATINIB [Suspect]
     Active Substance: ROGARATINIB
     Indication: LUNG NEOPLASM MALIGNANT
     Dosage: 800 MG
     Route: 048
     Dates: start: 20181214, end: 20181222
  18. ROGARATINIB [Suspect]
     Active Substance: ROGARATINIB
     Indication: LUNG NEOPLASM MALIGNANT
     Dosage: 600 MG
     Route: 048
     Dates: start: 20190109, end: 20190205
  19. COPANLISIB. [Suspect]
     Active Substance: COPANLISIB
     Indication: LUNG NEOPLASM MALIGNANT
     Dosage: 45 MG
     Route: 042
     Dates: start: 20181212, end: 20181212
  20. PIPERACILLIN AND TAZOBACTAM [Concomitant]
     Active Substance: PIPERACILLIN SODIUM\TAZOBACTAM SODIUM
     Indication: PYREXIA
     Dosage: 4.5 G, TID
     Route: 041
     Dates: start: 20190310, end: 20190310
  21. TRAMADOL HCL [Concomitant]
     Active Substance: TRAMADOL HYDROCHLORIDE
     Indication: PYREXIA
     Dosage: 25 MG, ONCE
     Route: 048
     Dates: start: 20190101, end: 20190101

REACTIONS (5)
  - Pyrexia [Recovered/Resolved]
  - Hypotension [Recovered/Resolved]
  - Dyspnoea [Recovering/Resolving]
  - Rash maculo-papular [Recovering/Resolving]
  - Pyrexia [Recovered/Resolved]

NARRATIVE: CASE EVENT DATE: 20181222
